FAERS Safety Report 7475412-2 (Version None)
Quarter: 2011Q2

REPORT INFORMATION
  Report Type: 
  Country: None (occurrence: None)
  Receive Date: 20110512
  Receipt Date: 20110428
  Transmission Date: 20111010
  Serious: Yes (Hospitalization)
  Sender: FDA-Public Use
  Company Number: AU-TEVA-280440ISR

PATIENT
  Sex: Female

DRUGS (14)
  1. ALPRAZOLAM [Concomitant]
     Indication: ANXIETY
     Dosage: .5 MILLIGRAM;
     Route: 048
     Dates: start: 20000101
  2. DEXAMETHASONE [Suspect]
     Indication: MULTIPLE MYELOMA
     Dosage: DAYS 1,8,15,22 PER CYCLE
     Dates: start: 20090612
  3. OXYCODONE HCL [Concomitant]
     Indication: BACK PAIN
     Dosage: 80 MILLIGRAM;
     Route: 048
     Dates: start: 20090624
  4. OXYCODONE HYDROCHLORIDE [Concomitant]
     Indication: BACK PAIN
     Dosage: 40 MILLIGRAM;
     Route: 048
     Dates: start: 20090703, end: 20090725
  5. CANDESARTAN CILEXETIL [Concomitant]
     Indication: HYPERTENSION
     Dosage: 4 MILLIGRAM;
     Route: 048
     Dates: start: 20100316
  6. VENLAFAXINE [Concomitant]
     Indication: DEPRESSION
     Dosage: 75 MILLIGRAM;
     Route: 048
     Dates: start: 20060101
  7. PERINDOPRIL [Concomitant]
     Indication: HYPERTENSION
     Dosage: 10 MILLIGRAM;
     Route: 048
     Dates: start: 20060101
  8. ACETYL SALICYLIC ACID USP BAT [Concomitant]
     Indication: THROMBOSIS PROPHYLAXIS
     Dosage: 150 MILLIGRAM;
     Route: 048
     Dates: start: 20090613
  9. ALLOPURINOL [Concomitant]
     Indication: PROPHYLAXIS
     Dosage: 100 MILLIGRAM;
     Route: 048
  10. PAMIDRONATE DISODIUM [Concomitant]
     Indication: PROPHYLAXIS
     Dosage: 60 OR 90 MG
     Route: 042
     Dates: start: 20090612
  11. COLCHICINE [Concomitant]
     Indication: GOUT
     Dosage: 1.5 MILLIGRAM;
     Route: 048
     Dates: start: 20090601, end: 20090711
  12. COLCHICINE [Concomitant]
     Dosage: 4.5 MILLIGRAM;
     Route: 048
     Dates: start: 20100222, end: 20100301
  13. LENALIDOMIDE [Suspect]
     Indication: MULTIPLE MYELOMA
     Dosage: 7.5 MILLIGRAM;
     Dates: start: 20090612
  14. ATORVASTATIN [Concomitant]
     Indication: HYPERCHOLESTEROLAEMIA
     Dosage: 20 MILLIGRAM;
     Route: 048

REACTIONS (1)
  - HAEMATOMA [None]
